FAERS Safety Report 12579865 (Version 3)
Quarter: 2016Q3

REPORT INFORMATION
  Report Type: Report from Study
  Country: CA (occurrence: CA)
  Receive Date: 20160721
  Receipt Date: 20160830
  Transmission Date: 20161109
  Serious: Yes (Hospitalization, Other)
  Sender: FDA-Public Use
  Company Number: CA-JNJFOC-20160602135

PATIENT
  Age: 52 Year
  Sex: Female
  Weight: 61.24 kg

DRUGS (10)
  1. REMICADE [Suspect]
     Active Substance: INFLIXIMAB
     Indication: CROHN^S DISEASE
     Route: 042
     Dates: start: 20160601
  2. REMICADE [Suspect]
     Active Substance: INFLIXIMAB
     Indication: CROHN^S DISEASE
     Route: 042
     Dates: start: 20160712
  3. IMOVANE [Concomitant]
     Active Substance: ZOPICLONE
     Route: 065
  4. TRAZODONE [Concomitant]
     Active Substance: TRAZODONE HYDROCHLORIDE
     Route: 065
  5. METHADONE [Concomitant]
     Active Substance: METHADONE HYDROCHLORIDE
     Route: 065
  6. CLONAZEPAM. [Concomitant]
     Active Substance: CLONAZEPAM
     Route: 065
  7. REMICADE [Suspect]
     Active Substance: INFLIXIMAB
     Indication: CROHN^S DISEASE
     Route: 042
     Dates: start: 20150514
  8. REMICADE [Suspect]
     Active Substance: INFLIXIMAB
     Indication: CROHN^S DISEASE
     Route: 042
  9. REMICADE [Suspect]
     Active Substance: INFLIXIMAB
     Indication: CROHN^S DISEASE
     Route: 042
     Dates: start: 20160823
  10. TRAMADOL. [Concomitant]
     Active Substance: TRAMADOL
     Indication: PAIN
     Route: 065

REACTIONS (13)
  - Crohn^s disease [Recovering/Resolving]
  - Faecaloma [Unknown]
  - Dehydration [Unknown]
  - Defaecation urgency [Unknown]
  - General physical health deterioration [Recovering/Resolving]
  - Cystitis [Unknown]
  - Off label use [Unknown]
  - Product use issue [Unknown]
  - Exposure during pregnancy [Unknown]
  - Insomnia [Unknown]
  - Abdominal pain [Recovering/Resolving]
  - Urinary retention [Unknown]
  - Fatigue [Unknown]

NARRATIVE: CASE EVENT DATE: 20150514
